FAERS Safety Report 7494054-6 (Version None)
Quarter: 2011Q2

REPORT INFORMATION
  Report Type: 
  Country: None (occurrence: None)
  Receive Date: 20110520
  Receipt Date: 20110511
  Transmission Date: 20111010
  Serious: Yes (Other)
  Sender: FDA-Public Use
  Company Number: FR-EISAI INC-E3810-04675-SPO-FR

PATIENT
  Age: 65 Year
  Sex: Female

DRUGS (1)
  1. RABEPRAZOLE SODIUM [Suspect]
     Route: 048

REACTIONS (2)
  - DERMATITIS ALLERGIC [None]
  - VARICOSE VEIN [None]
